FAERS Safety Report 11278938 (Version 1)
Quarter: 2015Q3

REPORT INFORMATION
  Report Type: Spontaneous
  Country: AT (occurrence: AT)
  Receive Date: 20150717
  Receipt Date: 20150717
  Transmission Date: 20151125
  Serious: Yes (Hospitalization)
  Sender: FDA-Public Use
  Company Number: AT-WATSON-2015-14880

PATIENT
  Age: 64 Year
  Sex: Male

DRUGS (1)
  1. URSODEOXYCHOLIC ACID (UNKNOWN) [Suspect]
     Active Substance: URSODIOL
     Indication: BILIARY CIRRHOSIS PRIMARY
     Dosage: 15 MG/KG, DAILY
     Route: 065
     Dates: start: 198802, end: 1988

REACTIONS (3)
  - Biliary cirrhosis primary [Recovered/Resolved]
  - Varices oesophageal [None]
  - Condition aggravated [Recovered/Resolved]
